FAERS Safety Report 11320403 (Version 1)
Quarter: 2015Q3

REPORT INFORMATION
  Report Type: Spontaneous
  Country: DE (occurrence: DE)
  Receive Date: 20150729
  Receipt Date: 20150729
  Transmission Date: 20151125
  Serious: Yes (Hospitalization)
  Sender: FDA-Public Use
  Company Number: GXKR2015DE003549

PATIENT

DRUGS (17)
  1. ORFIRIL [Suspect]
     Active Substance: VALPROIC ACID
     Dosage: 2400 MG, UNK
     Route: 048
     Dates: start: 20091013, end: 20091029
  2. TAVOR [Concomitant]
     Active Substance: LORAZEPAM
     Indication: PRODUCT USED FOR UNKNOWN INDICATION
     Dosage: 2 MG, UNK
     Route: 048
     Dates: start: 20090923, end: 20090924
  3. TAVOR [Concomitant]
     Active Substance: LORAZEPAM
     Dosage: 2 MG, UNK
     Route: 048
     Dates: start: 20101005, end: 20101008
  4. LAMOTRIGINE. [Interacting]
     Active Substance: LAMOTRIGINE
     Indication: PRODUCT USED FOR UNKNOWN INDICATION
     Dosage: 200 MG, UNK
     Route: 048
     Dates: start: 20090923, end: 20091204
  5. ORFIRIL [Suspect]
     Active Substance: VALPROIC ACID
     Dosage: 1800 MG, UNK
     Route: 048
     Dates: start: 20091029, end: 20091112
  6. ZYPREXA [Interacting]
     Active Substance: OLANZAPINE
     Dosage: 30 MG, UNK
     Route: 048
     Dates: start: 20091029, end: 20091110
  7. ORFIRIL [Suspect]
     Active Substance: VALPROIC ACID
     Indication: PRODUCT USED FOR UNKNOWN INDICATION
     Dosage: 2000 MG, UNK
     Route: 048
     Dates: start: 20090925, end: 20091013
  8. TAVOR [Concomitant]
     Active Substance: LORAZEPAM
     Dosage: 6 MG, UNK
     Route: 048
     Dates: start: 20090924, end: 20091001
  9. TAVOR [Concomitant]
     Active Substance: LORAZEPAM
     Dosage: 4 MG, UNK
     Route: 048
     Dates: start: 20101001, end: 20101005
  10. SEROQUEL [Concomitant]
     Active Substance: QUETIAPINE FUMARATE
     Indication: PRODUCT USED FOR UNKNOWN INDICATION
     Dosage: 300 MG, UNK
     Route: 048
     Dates: start: 20091110, end: 20091119
  11. TAVOR [Concomitant]
     Active Substance: LORAZEPAM
     Dosage: 4 MG, UNK
     Route: 048
     Dates: start: 20091012, end: 20091016
  12. ZYPREXA [Interacting]
     Active Substance: OLANZAPINE
     Dosage: 40 MG, UNK
     Dates: start: 20090923, end: 20090929
  13. TAVOR [Concomitant]
     Active Substance: LORAZEPAM
     Dosage: 1 MG, UNK
     Route: 048
     Dates: start: 20101008, end: 20101009
  14. TAVOR [Concomitant]
     Active Substance: LORAZEPAM
     Dosage: 2 MG, UNK
     Route: 048
     Dates: start: 20101009, end: 20101012
  15. TAVOR [Concomitant]
     Active Substance: LORAZEPAM
     Dosage: 2 MG, UNK
     Route: 048
     Dates: start: 20091016, end: 20091027
  16. ZOLDEM [Concomitant]
     Active Substance: ZOLPIDEM TARTRATE
     Indication: PRODUCT USED FOR UNKNOWN INDICATION
     Dosage: 7.5 MG, UNK
     Route: 048
     Dates: start: 20090923, end: 20091119
  17. TAVOR [Concomitant]
     Active Substance: LORAZEPAM
     Route: 048
     Dates: start: 20091027, end: 20091029

REACTIONS (1)
  - Altered state of consciousness [Recovered/Resolved]

NARRATIVE: CASE EVENT DATE: 20091110
